FAERS Safety Report 10785955 (Version 2)
Quarter: 2015Q1

REPORT INFORMATION
  Report Type: Spontaneous
  Country: PT (occurrence: PT)
  Receive Date: 20150211
  Receipt Date: 20150213
  Transmission Date: 20150721
  Serious: Yes (Hospitalization, Other)
  Sender: FDA-Public Use
  Company Number: PT-GILEAD-2015-0134865

PATIENT
  Age: 72 Year
  Sex: Female

DRUGS (6)
  1. RIBAVIRINE [Suspect]
     Active Substance: RIBAVIRIN
     Dosage: 850 UNKNOWN, UNK
     Route: 065
     Dates: start: 201501
  2. PERINDOPRIL [Concomitant]
     Active Substance: PERINDOPRIL
     Indication: HYPERTENSION
     Dosage: UNK
     Dates: start: 201501
  3. FUROSEMIDE. [Concomitant]
     Active Substance: FUROSEMIDE
     Indication: HYPERTENSION
     Dosage: UNK
     Dates: start: 201501
  4. RIBAVIRINE [Suspect]
     Active Substance: RIBAVIRIN
     Indication: HEPATITIS C
     Dosage: 1000 UNKNOWN, UNK
     Route: 065
     Dates: start: 20150104, end: 201501
  5. SOVALDI [Suspect]
     Active Substance: SOFOSBUVIR
     Indication: HEPATITIS C
     Dosage: UNK
     Route: 065
     Dates: start: 20150104
  6. LERCANIDIPINE [Concomitant]
     Active Substance: LERCANIDIPINE
     Indication: HYPERTENSION
     Dosage: UNK
     Dates: start: 201501

REACTIONS (15)
  - Nausea [Unknown]
  - Insomnia [Unknown]
  - Fatigue [Unknown]
  - Tremor [Not Recovered/Not Resolved]
  - Hypokalaemia [Unknown]
  - Influenza like illness [Unknown]
  - Headache [Unknown]
  - Diabetes mellitus [Unknown]
  - Depression [Unknown]
  - Decreased appetite [Unknown]
  - Asthenia [Not Recovered/Not Resolved]
  - Toxicity to various agents [Unknown]
  - Vomiting [Unknown]
  - Altered state of consciousness [Unknown]
  - Rash pruritic [Unknown]

NARRATIVE: CASE EVENT DATE: 201501
